FAERS Safety Report 8446949-4 (Version None)
Quarter: 2012Q2

REPORT INFORMATION
  Report Type: 
  Country: None (occurrence: None)
  Receive Date: 20120613
  Receipt Date: 20120613
  Transmission Date: 20120825
  Serious: Yes (Hospitalization)
  Sender: FDA-Public Use
  Company Number: None

PATIENT
  Age: 66 Year
  Sex: Male
  Weight: 54.6 kg

DRUGS (1)
  1. TEFLARO [Suspect]
     Indication: ENDOCARDITIS
     Dosage: 300 MG, EVERY 12 HOURS, IV
     Route: 042
     Dates: start: 20120518, end: 20120611

REACTIONS (3)
  - NEUTROPENIA [None]
  - RASH [None]
  - THROMBOCYTOPENIA [None]
